FAERS Safety Report 21366065 (Version 1)
Quarter: 2022Q3

REPORT INFORMATION
  Report Type: Spontaneous
  Country: DE (occurrence: DE)
  Receive Date: 20220922
  Receipt Date: 20220922
  Transmission Date: 20221026
  Serious: Yes (Hospitalization, Other)
  Sender: FDA-Public Use
  Company Number: DE-ADRED-06518-02

PATIENT
  Age: 74 Year
  Sex: Male
  Weight: 92 kg

DRUGS (18)
  1. TORSEMIDE [Suspect]
     Active Substance: TORSEMIDE
     Dosage: 50MG, 1-0-0-0, TABLETS
     Route: 048
  2. FEBUXOSTAT [Suspect]
     Active Substance: FEBUXOSTAT
     Dosage: 80MG, 1-0-0-0, TABLETS
     Route: 048
  3. APIXABAN [Suspect]
     Active Substance: APIXABAN
     Dosage: 5 MG, 1-0-1-0, TABLETS
     Route: 048
  4. CLOPIDOGREL BISULFATE [Suspect]
     Active Substance: CLOPIDOGREL BISULFATE
     Dosage: 75 MG, 1-0-0-0, TABLETS
     Route: 048
  5. CANDESARTAN [Suspect]
     Active Substance: CANDESARTAN
     Dosage: 8 MG, 0-0-1-0, TABLETS
     Route: 048
  6. METFORMIN [Suspect]
     Active Substance: METFORMIN HYDROCHLORIDE
     Dosage: 500MG, 0-0-1-0, TABLETS
     Route: 048
  7. METAMIZOLE [Concomitant]
     Active Substance: METAMIZOLE
     Dosage: 500MG, 1-1-1-1, TABLETS
     Route: 048
  8. LEVOTHYROXINE SODIUM [Concomitant]
     Active Substance: LEVOTHYROXINE SODIUM
     Dosage: 150 ?G, 1-0-0-0, TABLETS
     Route: 048
  9. LIRAGLUTIDE [Concomitant]
     Active Substance: LIRAGLUTIDE
     Dosage: 6 MG/ML, NK, PRE-FILLED SYRINGES
     Route: 058
  10. BISOPROLOL [Concomitant]
     Active Substance: BISOPROLOL
     Dosage: 5 MG, 0.5-0-0.5-0, TABLETS
     Route: 048
  11. TAMSULOSIN [Concomitant]
     Active Substance: TAMSULOSIN
     Dosage: 0.4 MG, 0-1-0-0, PROLONGED-RELEASE CAPSULES
     Route: 048
  12. MAGNESIUM [Concomitant]
     Active Substance: MAGNESIUM
     Dosage: 243 MG, 0-0-1-0, EFFERVESCENT TABLETS
     Route: 048
  13. ZOPICLONE [Concomitant]
     Active Substance: ZOPICLONE
     Dosage: 7.5 MG, 0-0-1-0, TABLETS
     Route: 048
  14. SPIRIVA [Concomitant]
     Active Substance: TIOTROPIUM BROMIDE MONOHYDRATE
     Dosage: 18 ?G, 1-0-0-0, CAPSULES
     Route: 055
  15. BUDESONIDE [Concomitant]
     Active Substance: BUDESONIDE
     Dosage: 200 ?G, 1-0-1-0, HARD CAPSULE WITH INHALATION POWDER
     Route: 055
  16. ALBUTEROL [Concomitant]
     Active Substance: ALBUTEROL
     Dosage: 1.25MG/2.5ML, 1-0-0-0, AMPOULES
     Route: 055
  17. FORMOTEROL [Concomitant]
     Active Substance: FORMOTEROL
     Dosage: 12 ?G, 1-0-1-0, HARD CAPSULE WITH INHALATION POWDER
     Route: 055
  18. PANTOPRAZOLE [Concomitant]
     Active Substance: PANTOPRAZOLE
     Dosage: 40 MG, 1-0-0-0, TABLETS
     Route: 048

REACTIONS (6)
  - Anaemia [Unknown]
  - Lower gastrointestinal haemorrhage [Unknown]
  - Acute kidney injury [Unknown]
  - Hypokalaemia [Unknown]
  - Haematochezia [Unknown]
  - Respiratory tract haemorrhage [Unknown]
